FAERS Safety Report 8339696 (Version 5)
Quarter: 2013Q1

REPORT INFORMATION
  Report Type: Spontaneous
  Country: FR (occurrence: FR)
  Receive Date: 20120117
  Receipt Date: 20130329
  Transmission Date: 20140127
  Serious: Yes (Hospitalization)
  Sender: FDA-Public Use
  Company Number: FR-SANOFI-AVENTIS-2012SA002479

PATIENT
  Age: 30 Year
  Sex: Female

DRUGS (5)
  1. ARAVA [Suspect]
     Indication: RHEUMATOID ARTHRITIS
     Route: 048
     Dates: start: 20100223, end: 20120110
  2. BIPROFENID [Suspect]
     Indication: RHEUMATOID ARTHRITIS
     Dosage: STRENGTH: 100 MG
     Route: 048
     Dates: end: 20120113
  3. DAFALGAN CODEINE [Concomitant]
     Indication: RHEUMATOID ARTHRITIS
     Dosage: DOSE 4 TO 6 UNITS PER DAY
     Route: 048
  4. INEXIUM [Concomitant]
     Route: 048
  5. ANAFRANIL [Concomitant]
     Dosage: STRENGTH: 25 MG; DOSE: 3 TABLETS PER DAY
     Route: 048

REACTIONS (2)
  - Foetal growth restriction [Unknown]
  - Exposure during pregnancy [Unknown]
